FAERS Safety Report 22643540 (Version 1)
Quarter: 2023Q2

REPORT INFORMATION
  Report Type: Spontaneous
  Country: US (occurrence: US)
  Receive Date: 20230627
  Receipt Date: 20230627
  Transmission Date: 20230722
  Serious: Yes (Hospitalization)
  Sender: FDA-Public Use
  Company Number: US-CHEMOCENTRYX, INC.-2023USCCXI0974

PATIENT
  Age: 64 Year
  Sex: Female
  Weight: 126 kg

DRUGS (1)
  1. TAVNEOS [Suspect]
     Active Substance: AVACOPAN
     Indication: Granulomatosis with polyangiitis
     Dosage: 30 MILLIGRAM, BID
     Route: 048
     Dates: start: 20230126

REACTIONS (2)
  - Knee arthroplasty [Unknown]
  - Product dose omission issue [Unknown]

NARRATIVE: CASE EVENT DATE: 20230101
